FAERS Safety Report 5144959-6 (Version None)
Quarter: 2006Q4

REPORT INFORMATION
  Report Type: 
  Country: None (occurrence: None)
  Receive Date: 20061107
  Receipt Date: 20061019
  Transmission Date: 20070319
  Serious: Yes (Disabling)
  Sender: FDA-Public Use
  Company Number: GB-AMGEN-UK197491

PATIENT
  Sex: Female
  Weight: 102 kg

DRUGS (5)
  1. NEULASTA [Suspect]
     Indication: CHEMOTHERAPY
     Route: 058
     Dates: start: 20061003
  2. EPIRUBICIN [Suspect]
     Route: 042
     Dates: start: 20061002
  3. VENTOLIN [Concomitant]
     Route: 055
  4. ONDANSETRON [Concomitant]
     Route: 048
     Dates: start: 20061002
  5. ONDANSETRON [Concomitant]
     Route: 040
     Dates: start: 20061002

REACTIONS (2)
  - HEADACHE [None]
  - PHOTOPSIA [None]
